FAERS Safety Report 5483059-2 (Version None)
Quarter: 2007Q4

REPORT INFORMATION
  Report Type: 
  Country: None (occurrence: None)
  Receive Date: 20071011
  Receipt Date: 20071011
  Transmission Date: 20080405
  Serious: Yes (Other)
  Sender: FDA-Public Use
  Company Number: US-SHR-US-2007-010557

PATIENT
  Age: 18 Year
  Sex: Female
  Weight: 58 kg

DRUGS (1)
  1. YAZ [Suspect]
     Indication: CONTRACEPTION
     Dosage: 1 TAB(S), 1X/DAY
     Dates: start: 20070101

REACTIONS (6)
  - CHLOASMA [None]
  - CONTACT LENS COMPLICATION [None]
  - EYE HAEMORRHAGE [None]
  - FLUID RETENTION [None]
  - LOWER EXTREMITY MASS [None]
  - WEIGHT INCREASED [None]
